FAERS Safety Report 9262747 (Version 1)
Quarter: 2013Q2

REPORT INFORMATION
  Report Type: Spontaneous
  Country: US (occurrence: US)
  Receive Date: 20130430
  Receipt Date: 20130430
  Transmission Date: 20140414
  Serious: No
  Sender: FDA-Public Use
  Company Number: US-PFIZER INC-2013020309

PATIENT
  Age: 55 Year
  Sex: Male
  Weight: 120.18 kg

DRUGS (16)
  1. XIFAXAN [Concomitant]
     Dosage: 550 MG, 2X/DAY
     Route: 048
  2. ALDACTONE [Concomitant]
     Dosage: 100 MG, 1X/DAY
  3. REVATIO [Suspect]
     Indication: PULMONARY HYPERTENSION
     Dosage: 20 MG, 3X/DAY
     Route: 048
     Dates: start: 201211
  4. REVATIO [Suspect]
     Dosage: 40 MG, 3X/DAY
     Route: 048
     Dates: start: 201212
  5. PROAIR HFA [Concomitant]
     Indication: DYSPNOEA
     Dosage: 2 INHALATIONS EVERY 4-6 HOURS
  6. PROAIR HFA [Concomitant]
     Indication: WHEEZING
  7. ELAVIL [Concomitant]
     Dosage: 25 MG, AS NEEDED AT BEDTIME
     Route: 048
  8. ASPIRIN [Concomitant]
     Dosage: 325 MG, 1X/DAY WITH BREAKFAST
     Route: 048
  9. LASIX [Concomitant]
     Dosage: TAKE 1 TAB (20 MG TOTAL) DAILY AS NEEDED. DAILY OR TWICE A DAY AS DIRECTED
     Route: 048
  10. LANTUS [Concomitant]
     Dosage: INJECT INTO SKIN 2 TIMES DAILY. INJECT 49 UNITS EVERY MOR AND 50 UNITS QHS
  11. NOVOLIN N [Concomitant]
     Dosage: 100 UNIT/ML, INJECT INTO SKIN AS DIRECTED
  12. LACTULOSE [Concomitant]
     Dosage: 30 ML, 1X/DAY
     Route: 048
  13. CORGARD [Concomitant]
     Dosage: 20 MG, 1X/DAY
     Route: 048
  14. PRILOSEC [Concomitant]
     Dosage: 40 MG, 1X/DAY
     Route: 048
  15. ROXICODONE [Concomitant]
     Indication: PAIN
     Dosage: 5 MG, ONE OR TWO TABLETS Q4-6H PRN PAIN
  16. PRAVACHOL [Concomitant]
     Dosage: 1/2 TABLET (5MG TOTAL) QD
     Route: 048

REACTIONS (2)
  - Chest pain [Unknown]
  - Gastrooesophageal reflux disease [Unknown]
